FAERS Safety Report 6874641-6 (Version None)
Quarter: 2010Q3

REPORT INFORMATION
  Report Type: 
  Country: None (occurrence: None)
  Receive Date: 20100722
  Receipt Date: 20100429
  Transmission Date: 20110219
  Serious: Yes (Other)
  Sender: FDA-Public Use
  Company Number: AVE_01788_2010

PATIENT
  Sex: Female

DRUGS (7)
  1. CLONIDINE [Suspect]
     Indication: HYPERTENSION
     Dosage: (0.2 MG, VIA 1/WEEKLY PATCH TRANSDERMAL) ; (0.3 MG QD, VIA 1/WEEKLY PATCH)
     Route: 062
     Dates: start: 20100301, end: 20100401
  2. CLONIDINE [Suspect]
     Indication: HYPERTENSION
     Dosage: (0.2 MG, VIA 1/WEEKLY PATCH TRANSDERMAL) ; (0.3 MG QD, VIA 1/WEEKLY PATCH)
     Route: 062
     Dates: start: 20100401
  3. CLONIDINE [Suspect]
  4. LISINOPRIL [Concomitant]
  5. LABETALOL HCL [Concomitant]
  6. TRIAMTERENE AND HYDROCHLOROTHIAZIDE [Concomitant]
  7. ASPIRIN [Concomitant]

REACTIONS (6)
  - BLOOD PRESSURE INCREASED [None]
  - DERMATITIS CONTACT [None]
  - DRUG INEFFECTIVE [None]
  - DRY SKIN [None]
  - PRODUCT QUALITY ISSUE [None]
  - TREATMENT NONCOMPLIANCE [None]
